FAERS Safety Report 17255271 (Version 1)
Quarter: 2020Q1

REPORT INFORMATION
  Report Type: Spontaneous
  Country: US (occurrence: US)
  Receive Date: 20200110
  Receipt Date: 20200110
  Transmission Date: 20200409
  Serious: No
  Sender: FDA-Public Use
  Company Number: US-PRINSTON PHARMACEUTICAL INC.-2019PRN00639

PATIENT
  Sex: Male

DRUGS (1)
  1. RISPERIDONE. [Suspect]
     Active Substance: RISPERIDONE
     Dosage: 0.25 MG, 2X/DAY

REACTIONS (12)
  - Tendonitis [Unknown]
  - Muscle contractions involuntary [Unknown]
  - Unevaluable event [Unknown]
  - Arthralgia [Unknown]
  - Metabolic disorder [Unknown]
  - Pain [Unknown]
  - Drug ineffective [Not Recovered/Not Resolved]
  - Gait disturbance [Unknown]
  - Arthropathy [Unknown]
  - Weight increased [Unknown]
  - Muscular weakness [Unknown]
  - Somatic symptom disorder [Unknown]

NARRATIVE: CASE EVENT DATE: 201803
